FAERS Safety Report 4985613-0 (Version None)
Quarter: 2006Q2

REPORT INFORMATION
  Report Type: 
  Country: None (occurrence: None)
  Receive Date: 20060426
  Receipt Date: 20060426
  Transmission Date: 20061013
  Serious: Yes (Hospitalization)
  Sender: FDA-Public Use
  Company Number: None

PATIENT
  Sex: Male
  Weight: 75.7507 kg

DRUGS (1)
  1. INSULIN INSULATARD NPH NORDISK [Suspect]
     Dosage: 38 UNITS AM AND 10 UNITS PM
     Dates: start: 20050602, end: 20051114

REACTIONS (4)
  - BLOOD GLUCOSE DECREASED [None]
  - DROOLING [None]
  - SOMNOLENCE [None]
  - SPEECH DISORDER [None]
